FAERS Safety Report 24298964 (Version 2)
Quarter: 2024Q3

REPORT INFORMATION
  Report Type: Spontaneous
  Country: SK (occurrence: SK)
  Receive Date: 20240909
  Receipt Date: 20240923
  Transmission Date: 20241017
  Serious: Yes (Hospitalization, Other)
  Sender: SANDOZ
  Company Number: SK-002147023-PHHY2018SK115409

PATIENT
  Age: 29 Year
  Sex: Male

DRUGS (9)
  1. ACITRETIN [Suspect]
     Active Substance: ACITRETIN
     Indication: Psoriasis
     Dosage: UNK
     Route: 065
  2. CYCLOSPORINE [Suspect]
     Active Substance: CYCLOSPORINE
     Indication: Psoriasis
     Dosage: UNK
     Route: 065
  3. ETANERCEPT [Suspect]
     Active Substance: ETANERCEPT
     Indication: Psoriasis
     Dosage: UNK
     Route: 065
     Dates: start: 200607
  4. ETANERCEPT [Suspect]
     Active Substance: ETANERCEPT
     Dosage: UNK
     Route: 065
     Dates: start: 200805
  5. EFALIZUMAB [Suspect]
     Active Substance: EFALIZUMAB
     Indication: Psoriasis
     Dosage: UNK
     Route: 065
     Dates: start: 200607
  6. INFLIXIMAB [Suspect]
     Active Substance: INFLIXIMAB
     Indication: Psoriasis
     Dosage: UNK
     Route: 042
     Dates: start: 200701
  7. METHOTREXATE [Suspect]
     Active Substance: METHOTREXATE
     Dosage: 5 MG, QW
     Route: 065
  8. METHOTREXATE [Suspect]
     Active Substance: METHOTREXATE
     Indication: Psoriasis
     Dosage: DOSAGE FORM: UNSPECIFIED
     Route: 065
  9. METHOTREXATE [Suspect]
     Active Substance: METHOTREXATE
     Dosage: 7 MG, QW
     Route: 065

REACTIONS (9)
  - Psoriasis [Unknown]
  - Mobility decreased [Unknown]
  - Erythrodermic psoriasis [Unknown]
  - Asthenia [Unknown]
  - Progressive multifocal leukoencephalopathy [Recovering/Resolving]
  - Cachexia [Recovering/Resolving]
  - Pyrexia [Unknown]
  - Therapeutic response decreased [Recovering/Resolving]
  - Drug ineffective [Unknown]

NARRATIVE: CASE EVENT DATE: 20060701
